FAERS Safety Report 21023603 (Version 1)
Quarter: 2022Q2

REPORT INFORMATION
  Report Type: Spontaneous
  Country: PL (occurrence: PL)
  Receive Date: 20220629
  Receipt Date: 20220629
  Transmission Date: 20220720
  Serious: Yes (Hospitalization, Other)
  Sender: FDA-Public Use
  Company Number: PL-ABBVIE-22K-129-4274232-00

PATIENT
  Age: 68 Year
  Sex: Male

DRUGS (19)
  1. VENETOCLAX [Suspect]
     Active Substance: VENETOCLAX
     Indication: Acute myeloid leukaemia
     Route: 048
     Dates: start: 20211203, end: 20211203
  2. VENETOCLAX [Suspect]
     Active Substance: VENETOCLAX
     Route: 048
     Dates: start: 20211204, end: 20211204
  3. VENETOCLAX [Suspect]
     Active Substance: VENETOCLAX
     Route: 048
     Dates: start: 20211205, end: 20211231
  4. VENETOCLAX [Suspect]
     Active Substance: VENETOCLAX
     Route: 048
     Dates: start: 20211231, end: 20220128
  5. VENETOCLAX [Suspect]
     Active Substance: VENETOCLAX
     Route: 048
     Dates: start: 20220211, end: 20220311
  6. VENETOCLAX [Suspect]
     Active Substance: VENETOCLAX
     Route: 048
     Dates: start: 20220311, end: 20220313
  7. AZACITIDINE [Concomitant]
     Active Substance: AZACITIDINE
     Indication: Acute myeloid leukaemia
     Route: 058
     Dates: start: 20211203, end: 20211210
  8. AZACITIDINE [Concomitant]
     Active Substance: AZACITIDINE
     Route: 058
     Dates: start: 20211231, end: 20220106
  9. AZACITIDINE [Concomitant]
     Active Substance: AZACITIDINE
     Route: 058
     Dates: start: 20220211, end: 20220218
  10. AZACITIDINE [Concomitant]
     Active Substance: AZACITIDINE
     Route: 058
     Dates: start: 20220311, end: 20220313
  11. DECITABINE [Concomitant]
     Active Substance: DECITABINE
     Indication: Acute myeloid leukaemia
     Dates: start: 20211203, end: 20211207
  12. ALLOPURINOL [Concomitant]
     Active Substance: ALLOPURINOL
     Indication: Prophylaxis
  13. ACYCLOVIR [Concomitant]
     Active Substance: ACYCLOVIR
     Indication: Infection
  14. ACYCLOVIR [Concomitant]
     Active Substance: ACYCLOVIR
     Indication: Antiviral prophylaxis
  15. SULFAMETHOXAZOLE [Concomitant]
     Active Substance: SULFAMETHOXAZOLE
     Indication: Infection
  16. TRIMETHOPRIM [Concomitant]
     Active Substance: TRIMETHOPRIM
     Indication: Infection
  17. HEPARIN [Concomitant]
     Active Substance: HEPARIN SODIUM
     Indication: Venous thrombosis limb
  18. IMIPENEM [Concomitant]
     Active Substance: IMIPENEM
     Indication: Escherichia infection
     Route: 042
  19. AMOXICILLIN [Concomitant]
     Active Substance: AMOXICILLIN
     Indication: Escherichia infection
     Route: 048

REACTIONS (11)
  - Dermal cyst [Unknown]
  - Pancytopenia [Unknown]
  - Haemoglobin decreased [Recovered/Resolved]
  - Glomerular filtration rate decreased [Recovered/Resolved]
  - Thrombocytosis [Unknown]
  - Pseudomonas infection [Unknown]
  - Klebsiella infection [Unknown]
  - Fungal infection [Unknown]
  - Infection [Unknown]
  - Neutropenia [Unknown]
  - Thrombocytopenia [Unknown]

NARRATIVE: CASE EVENT DATE: 20211201
